FAERS Safety Report 23286710 (Version 2)
Quarter: 2023Q4

REPORT INFORMATION
  Report Type: Spontaneous
  Country: DE (occurrence: DE)
  Receive Date: 20231212
  Receipt Date: 20231227
  Transmission Date: 20240110
  Serious: No
  Sender: FDA-Public Use
  Company Number: DE-002147023-NVSC2023DE254703

PATIENT
  Age: 70 Year
  Sex: Male
  Weight: 72 kg

DRUGS (16)
  1. TOCILIZUMAB [Suspect]
     Active Substance: TOCILIZUMAB
     Indication: Giant cell arteritis
     Dosage: (FRIDAYS)
     Route: 065
     Dates: start: 20230526
  2. RUXOLITINIB [Suspect]
     Active Substance: RUXOLITINIB
     Indication: Primary myelofibrosis
     Route: 065
     Dates: start: 20230716, end: 202307
  3. RUXOLITINIB [Suspect]
     Active Substance: RUXOLITINIB
     Route: 065
     Dates: start: 202307
  4. HYDROXYUREA [Suspect]
     Active Substance: HYDROXYUREA
     Indication: Thrombocytopenia
     Dosage: MOST RECENT DOSE: 15/JUL/2023
     Route: 065
     Dates: start: 20230630
  5. HYDROXYUREA [Suspect]
     Active Substance: HYDROXYUREA
     Indication: Myeloproliferative neoplasm
  6. AMLODIPINE [Concomitant]
     Active Substance: AMLODIPINE BESYLATE
     Indication: Product used for unknown indication
     Dosage: UNK, QD (0-0-1)
  7. PREDNISOLONE [Concomitant]
     Active Substance: PREDNISOLONE
     Indication: Product used for unknown indication
     Dosage: UNK
     Dates: start: 20230525
  8. PREDNISOLONE [Concomitant]
     Active Substance: PREDNISOLONE
     Dosage: 17.5 MG
  9. CHOLECALCIFEROL [Concomitant]
     Active Substance: CHOLECALCIFEROL
     Indication: Product used for unknown indication
     Dosage: UNK, QD (1-0-0)
  10. ATORVASTATIN [Concomitant]
     Active Substance: ATORVASTATIN
     Indication: Product used for unknown indication
     Dosage: UNK, QD (0-0-1)
  11. COTRIMOXAZOLE [Concomitant]
     Active Substance: SULFAMETHOXAZOLE\TRIMETHOPRIM
     Indication: Product used for unknown indication
     Dosage: UNK, QD (1-0-0)
  12. RAMIPRIL [Concomitant]
     Active Substance: RAMIPRIL
     Indication: Product used for unknown indication
     Dosage: UNK, BID (1-0-1)
  13. METFORMIN [Concomitant]
     Active Substance: METFORMIN HYDROCHLORIDE
     Indication: Product used for unknown indication
     Dosage: UNK, BID (1-0-1)
  14. ASPIRIN [Concomitant]
     Active Substance: ASPIRIN
     Indication: Product used for unknown indication
     Dosage: UNK, QD (1-0-0)
  15. EZETIMIBE [Concomitant]
     Active Substance: EZETIMIBE
     Indication: Product used for unknown indication
     Dosage: UNK, QD (0-0-1)
  16. TORSEMIDE [Concomitant]
     Active Substance: TORSEMIDE
     Indication: Product used for unknown indication
     Dosage: UNK (1-0-0)

REACTIONS (1)
  - Infection susceptibility increased [Not Recovered/Not Resolved]

NARRATIVE: CASE EVENT DATE: 20230730
